FAERS Safety Report 6519180-7 (Version None)
Quarter: 2009Q4

REPORT INFORMATION
  Report Type: 
  Country: None (occurrence: None)
  Receive Date: 20091228
  Receipt Date: 20091217
  Transmission Date: 20100525
  Serious: Yes (Death)
  Sender: FDA-Public Use
  Company Number: US-SANOFI-AVENTIS-2009SA010472

PATIENT
  Sex: Female

DRUGS (2)
  1. PLAVIX [Interacting]
     Route: 048
  2. ESOMEPRAZOLE SODIUM (NEXIUM) [Suspect]
     Route: 065

REACTIONS (2)
  - DEATH [None]
  - DRUG INTERACTION [None]
